FAERS Safety Report 5796272-1 (Version None)
Quarter: 2008Q3

REPORT INFORMATION
  Report Type: 
  Country: None (occurrence: None)
  Receive Date: 20080701
  Receipt Date: 20080624
  Transmission Date: 20090109
  Serious: Yes (Other)
  Sender: FDA-Public Use
  Company Number: US-VALEANT-2008VX001242

PATIENT
  Age: 42 Year
  Sex: Female
  Weight: 90 kg

DRUGS (2)
  1. EFUDEX [Suspect]
     Indication: VAGINAL DYSPLASIA
     Route: 067
     Dates: start: 20080201, end: 20080225
  2. VAGIFEM [Concomitant]
     Route: 065

REACTIONS (17)
  - BLADDER DISORDER [None]
  - BLADDER PAIN [None]
  - BREAST MASS [None]
  - CYSTITIS [None]
  - FUNGAL INFECTION [None]
  - HAEMATURIA [None]
  - INCONTINENCE [None]
  - NO THERAPEUTIC RESPONSE [None]
  - OFF LABEL USE [None]
  - PAIN [None]
  - PYREXIA [None]
  - SKIN EXFOLIATION [None]
  - VAGINAL HAEMORRHAGE [None]
  - VAGINAL INFECTION [None]
  - VAGINAL INFLAMMATION [None]
  - VAGINAL SWELLING [None]
  - VULVOVAGINAL DISCOMFORT [None]
